FAERS Safety Report 6596309-6 (Version None)
Quarter: 2010Q1

REPORT INFORMATION
  Report Type: 
  Country: None (occurrence: None)
  Receive Date: 20100216
  Receipt Date: 20100203
  Transmission Date: 20100710
  Serious: Yes (Hospitalization)
  Sender: FDA-Public Use
  Company Number: 2010GW000027

PATIENT
  Sex: Female
  Weight: 81.6475 kg

DRUGS (3)
  1. TAMBOCOR [Suspect]
     Indication: ARRHYTHMIA
     Dosage: 100 MG; QD
  2. FLECAINIDE ACETATE [Suspect]
     Indication: ARRHYTHMIA
  3. SYNTHROID [Concomitant]

REACTIONS (16)
  - ABDOMINAL DISCOMFORT [None]
  - APHONIA [None]
  - ASTHENIA [None]
  - CARDIOVASCULAR DISORDER [None]
  - DEAFNESS UNILATERAL [None]
  - DEPRESSION [None]
  - DRUG HYPERSENSITIVITY [None]
  - FATIGUE [None]
  - GASTRIC DISORDER [None]
  - HYPERHIDROSIS [None]
  - HYPOACUSIS [None]
  - ILEUS [None]
  - LOSS OF CONSCIOUSNESS [None]
  - RETCHING [None]
  - TINNITUS [None]
  - VERTIGO [None]
